FAERS Safety Report 4647008-9 (Version None)
Quarter: 2005Q2

REPORT INFORMATION
  Report Type: 
  Country: None (occurrence: None)
  Receive Date: 20050331
  Receipt Date: 20050207
  Transmission Date: 20051028
  Serious: No
  Sender: FDA-Public Use
  Company Number: 05P-163-0289957

PATIENT
  Age: 69 Year
  Sex: Female
  Weight: 77.1115 kg

DRUGS (8)
  1. HUMIRA [Suspect]
     Indication: RHEUMATOID ARTHRITIS
     Dosage: 40 MG, 1 IN 2 WK, SUBCUTANEOUS
     Route: 058
     Dates: start: 20041007
  2. VERAPAMIL [Concomitant]
  3. CLONIDINE HCL [Concomitant]
  4. KARVEA HCT [Concomitant]
  5. GEMFIBROZIL [Concomitant]
  6. MAPROTILINE [Concomitant]
  7. GABAPENTIN [Concomitant]
  8. CRESTOR [Concomitant]

REACTIONS (1)
  - PULMONARY CONGESTION [None]
